FAERS Safety Report 9736969 (Version 1)
Quarter: 2013Q4

REPORT INFORMATION
  Report Type: Spontaneous
  Country: US (occurrence: US)
  Receive Date: 20131206
  Receipt Date: 20131206
  Transmission Date: 20140711
  Serious: No
  Sender: FDA-Public Use
  Company Number: US-GILEAD-2009-0022643

PATIENT
  Sex: Female
  Weight: 47.63 kg

DRUGS (5)
  1. LETAIRIS [Suspect]
     Indication: PULMONARY ARTERIAL HYPERTENSION
     Route: 048
     Dates: start: 20081219
  2. PROPRANOLOL [Concomitant]
  3. ACTONEL [Concomitant]
  4. FLONASE [Concomitant]
  5. LUNESTA [Concomitant]

REACTIONS (1)
  - Dyspnoea [Unknown]
